FAERS Safety Report 6166901-1 (Version None)
Quarter: 2009Q2

REPORT INFORMATION
  Report Type: 
  Country: None (occurrence: None)
  Receive Date: 20090424
  Receipt Date: 20090416
  Transmission Date: 20091009
  Serious: Yes (Other)
  Sender: FDA-Public Use
  Company Number: B0570886A

PATIENT
  Sex: Male

DRUGS (2)
  1. LAMICTAL [Suspect]
     Indication: EPILEPSY
     Route: 065
     Dates: start: 20050101
  2. TEGRETOL [Concomitant]

REACTIONS (7)
  - BALANCE DISORDER [None]
  - DYSPNOEA [None]
  - HYPOAESTHESIA [None]
  - MUSCLE RIGIDITY [None]
  - MUSCULAR WEAKNESS [None]
  - SKULL FRACTURE [None]
  - TOOTH LOSS [None]
